FAERS Safety Report 8136918-6 (Version None)
Quarter: 2012Q1

REPORT INFORMATION
  Report Type: 
  Country: None (occurrence: None)
  Receive Date: 20120214
  Receipt Date: 20120208
  Transmission Date: 20120608
  Serious: Yes (Hospitalization, Other)
  Sender: FDA-Public Use
  Company Number: US-ASTRAZENECA-2011SE22503

PATIENT
  Age: 59 Year
  Sex: Female
  Weight: 106.6 kg

DRUGS (38)
  1. SEROQUEL [Suspect]
     Route: 048
  2. REQUIP [Concomitant]
     Route: 048
  3. NUERONTIN [Concomitant]
     Indication: RESTLESS LEGS SYNDROME
  4. VITAMIN D [Concomitant]
  5. SEROQUEL [Suspect]
     Route: 048
  6. SEROQUEL [Suspect]
     Route: 048
  7. HUMALOG PEN [Concomitant]
     Indication: TYPE 2 DIABETES MELLITUS
     Dosage: TOTAL DAILY DOSE 75 MG, 25 MG BID
     Route: 058
  8. FLOMAX [Concomitant]
     Indication: BLADDER DISORDER
  9. CALCIUM [Concomitant]
  10. SEROQUEL [Suspect]
     Indication: BIPOLAR DISORDER
     Route: 048
     Dates: start: 19810101, end: 20110425
  11. SEROQUEL [Suspect]
     Route: 048
  12. LITHIUM CARBONATE [Suspect]
     Route: 065
     Dates: start: 19810101
  13. REQUIP [Concomitant]
     Route: 048
  14. PRAVASTATIN [Concomitant]
     Indication: BLOOD CHOLESTEROL INCREASED
     Route: 048
  15. LEXAPRO [Concomitant]
     Indication: DEPRESSION
     Dosage: 40 MG QAM
     Route: 048
  16. BENAZEPRIL HYDROCHLORIDE [Concomitant]
     Indication: BLOOD PRESSURE
  17. VESICARE [Concomitant]
     Route: 048
  18. SEROQUEL [Suspect]
     Route: 048
  19. REQUIP [Concomitant]
     Indication: RESTLESS LEGS SYNDROME
     Route: 048
  20. REQUIP [Concomitant]
     Dosage: TID
  21. FAMOTIDINE [Concomitant]
     Indication: GASTROOESOPHAGEAL REFLUX DISEASE
     Dosage: 20 MG QAM
     Route: 048
  22. PRIMIDONE [Concomitant]
     Indication: PARKINSON'S DISEASE
     Route: 048
  23. LEVOTHYROXINE SODIUM [Concomitant]
     Indication: THYROID DISORDER
     Dosage: 50 MCG QAM
     Route: 048
  24. SINEMET [Concomitant]
     Indication: PARKINSON'S DISEASE
     Route: 048
  25. REQUIP [Concomitant]
     Indication: PARKINSON'S DISEASE
     Route: 048
  26. SINEMET [Concomitant]
     Route: 048
  27. GABAPENTIN [Concomitant]
     Indication: NEUROPATHY PERIPHERAL
     Route: 048
  28. CITALOPRAM HYDROBROMIDE [Concomitant]
     Indication: DEPRESSION
  29. GENERIC VESICAR [Concomitant]
  30. MULTI-VITAMINS [Concomitant]
  31. CITALOPRAM HYDROBROMIDE [Concomitant]
     Indication: BIPOLAR DISORDER
  32. SEROQUEL [Suspect]
     Indication: SLEEP DISORDER
     Route: 048
     Dates: start: 19810101, end: 20110425
  33. SEROQUEL [Suspect]
     Route: 048
  34. DEPAKOTE [Concomitant]
     Indication: BIPOLAR DISORDER
     Route: 048
  35. REQUIP [Concomitant]
     Dosage: TID
  36. CARBIDOPA [Concomitant]
     Indication: PARKINSON'S DISEASE
  37. TWO OTHER VITAMINS [Concomitant]
  38. NATURE MADE D3 [Concomitant]
     Indication: VITAMIN D ABNORMAL

REACTIONS (31)
  - DIABETES MELLITUS [None]
  - WEIGHT DECREASED [None]
  - RESTLESS LEGS SYNDROME [None]
  - DRUG DOSE OMISSION [None]
  - COMA [None]
  - ABASIA [None]
  - FRACTURED COCCYX [None]
  - PAIN [None]
  - THYROID DISORDER [None]
  - ASTHENIA [None]
  - PARKINSON'S DISEASE [None]
  - GOITRE [None]
  - SINUSITIS [None]
  - SOMNOLENCE [None]
  - TOXICITY TO VARIOUS AGENTS [None]
  - DIARRHOEA [None]
  - BLADDER DISORDER [None]
  - INSOMNIA [None]
  - NEUROPATHY PERIPHERAL [None]
  - FALL [None]
  - CHOLELITHIASIS [None]
  - MUSCULOSKELETAL DISCOMFORT [None]
  - MANIA [None]
  - OSTEOPOROSIS [None]
  - RENAL FAILURE [None]
  - DIZZINESS [None]
  - FUNCTIONAL GASTROINTESTINAL DISORDER [None]
  - DEHYDRATION [None]
  - NASOPHARYNGITIS [None]
  - FATIGUE [None]
  - BLOOD CHOLESTEROL INCREASED [None]
